FAERS Safety Report 19716660 (Version 1)
Quarter: 2021Q3

REPORT INFORMATION
  Report Type: Report from Study
  Country: GB (occurrence: GB)
  Receive Date: 20210818
  Receipt Date: 20210818
  Transmission Date: 20211014
  Serious: Yes (Other)
  Sender: FDA-Public Use
  Company Number: GB-AMGEN-GBRSL2021054026

PATIENT
  Age: 62 Year
  Sex: Female

DRUGS (1)
  1. AMGEVITA [Suspect]
     Active Substance: ADALIMUMAB
     Indication: CROHN^S DISEASE
     Dosage: 40 MILLIGRAM, Q3WK
     Route: 065

REACTIONS (2)
  - Off label use [Unknown]
  - Lung neoplasm malignant [Unknown]
